FAERS Safety Report 6123035-X (Version None)
Quarter: 2009Q1

REPORT INFORMATION
  Report Type: 
  Country: None (occurrence: None)
  Receive Date: 20090318
  Receipt Date: 20090306
  Transmission Date: 20090719
  Serious: Yes (Other)
  Sender: FDA-Public Use
  Company Number: DE-AMGEN-UK337286

PATIENT
  Sex: Female
  Weight: 67 kg

DRUGS (6)
  1. ARANESP [Suspect]
     Indication: ANAEMIA
     Dates: start: 20081223
  2. DEXAMETHASONE TAB [Concomitant]
  3. GRANISETRON [Concomitant]
  4. METOCLOPRAMIDE [Concomitant]
  5. GEMCITABINE HCL [Concomitant]
  6. CARBOPLATIN [Concomitant]

REACTIONS (2)
  - HAEMOGLOBIN DECREASED [None]
  - THERAPEUTIC RESPONSE DECREASED [None]
